FAERS Safety Report 17901178 (Version 4)
Quarter: 2021Q1

REPORT INFORMATION
  Report Type: Spontaneous
  Country: US (occurrence: US)
  Receive Date: 20200616
  Receipt Date: 20210302
  Transmission Date: 20210419
  Serious: Yes (Hospitalization, Other)
  Sender: FDA-Public Use
  Company Number: US-PFIZER INC-2020232286

PATIENT
  Age: 72 Year
  Sex: Male

DRUGS (5)
  1. XELJANZ [Suspect]
     Active Substance: TOFACITINIB CITRATE
     Dosage: 5 MG, DAILY (ONE TABLET DAILY)
     Route: 048
     Dates: start: 202003
  2. VITAMIN C [Concomitant]
     Active Substance: ASCORBIC ACID
     Dosage: UNK
  3. XELJANZ [Suspect]
     Active Substance: TOFACITINIB CITRATE
     Indication: RHEUMATOID ARTHRITIS
     Dosage: 5 MG, 1X/DAY
     Route: 048
     Dates: start: 202003
  4. PREDNISONE. [Concomitant]
     Active Substance: PREDNISONE
     Dosage: UNK
  5. XELJANZ [Suspect]
     Active Substance: TOFACITINIB CITRATE
     Dosage: 5 MG, DAILY
     Route: 048
     Dates: start: 20201021

REACTIONS (12)
  - Myocardial infarction [Unknown]
  - Rhinorrhoea [Unknown]
  - Rash macular [Unknown]
  - Sepsis [Unknown]
  - Renal disorder [Unknown]
  - Inappropriate schedule of product administration [Unknown]
  - Lung disorder [Unknown]
  - Intentional dose omission [Unknown]
  - Atrial fibrillation [Unknown]
  - COVID-19 [Unknown]
  - Device related infection [Unknown]
  - Chest pain [Unknown]

NARRATIVE: CASE EVENT DATE: 2020
